FAERS Safety Report 10051629 (Version 1)
Quarter: 2014Q1

REPORT INFORMATION
  Report Type: Spontaneous
  Country: US (occurrence: None)
  Receive Date: 20140331
  Receipt Date: 20140331
  Transmission Date: 20141002
  Serious: Yes (Other)
  Sender: FDA-Public Use
  Company Number: 2014SA035752

PATIENT
  Age: 40 Year
  Sex: Female

DRUGS (1)
  1. ICY HOT BACK PATCH [Suspect]
     Indication: PRODUCT USED FOR UNKNOWN INDICATION
     Route: 062

REACTIONS (4)
  - Blister [None]
  - Pain [None]
  - Skin exfoliation [None]
  - Application site laceration [None]
